FAERS Safety Report 6588839-8 (Version None)
Quarter: 2010Q1

REPORT INFORMATION
  Report Type: 
  Country: None (occurrence: None)
  Receive Date: 20100218
  Receipt Date: 20100215
  Transmission Date: 20100710
  Serious: Yes (Other)
  Sender: FDA-Public Use
  Company Number: A0844492A

PATIENT
  Sex: Female

DRUGS (7)
  1. LAMICTAL [Suspect]
     Indication: BIPOLAR DISORDER
     Dosage: 250MG PER DAY
     Route: 048
     Dates: start: 20091101
  2. ADVIL [Concomitant]
  3. ADDERALL 30 [Concomitant]
  4. WELLBUTRIN SR [Concomitant]
  5. AMBIEN [Concomitant]
  6. KLONOPIN [Concomitant]
  7. SALINE NASAL SPRAY [Concomitant]

REACTIONS (3)
  - EPISTAXIS [None]
  - EYE HAEMORRHAGE [None]
  - TREMOR [None]
